FAERS Safety Report 4591866-3 (Version None)
Quarter: 2005Q1

REPORT INFORMATION
  Report Type: 
  Country: None (occurrence: None)
  Receive Date: 20050222
  Receipt Date: 20050207
  Transmission Date: 20050727
  Serious: Yes (Hospitalization, Other)
  Sender: FDA-Public Use
  Company Number: HQWYE211710FEB05

PATIENT
  Age: 18 Year
  Sex: Female

DRUGS (2)
  1. RAPAMUNE [Suspect]
     Dosage: SEE IMAGE
  2. TACROLIMUS (TACROLIMUS) [Concomitant]

REACTIONS (4)
  - ABDOMINAL PAIN [None]
  - HEPATITIS A ANTIBODY POSITIVE [None]
  - LEUKOCYTOCLASTIC VASCULITIS [None]
  - VASCULITIS GASTROINTESTINAL [None]
